FAERS Safety Report 4863025-8 (Version None)
Quarter: 2005Q4

REPORT INFORMATION
  Report Type: 
  Country: None (occurrence: None)
  Receive Date: 20051130
  Receipt Date: 20050920
  Transmission Date: 20060501
  Serious: No
  Sender: FDA-Public Use
  Company Number: FABR-11183

PATIENT
  Age: 38 Year
  Sex: Female
  Weight: 59 kg

DRUGS (7)
  1. FABRAZYME [Suspect]
     Indication: FABRY'S DISEASE
     Dosage: 70 MG Q2WKS IV
     Route: 042
     Dates: start: 20050608, end: 20050706
  2. RAMIPRIL [Suspect]
     Indication: NEPHROPATHY
     Dosage: 5 MG DAILY
     Dates: start: 20050415, end: 20050517
  3. CAPTOPRIL [Suspect]
     Indication: NEPHROPATHY
     Dosage: 25 MG DAILY
     Dates: start: 20050518, end: 20050706
  4. ENALAPRIL [Suspect]
     Indication: NEPHROPATHY
     Dosage: 2.5 MG DAILY
     Dates: start: 20050707
  5. RAMIPRIL [Concomitant]
  6. CAPTOPRIL [Concomitant]
  7. ENALAPRIL [Concomitant]

REACTIONS (2)
  - ARTHROPATHY [None]
  - SUPRAVENTRICULAR TACHYCARDIA [None]
